FAERS Safety Report 6782236-8 (Version None)
Quarter: 2010Q2

REPORT INFORMATION
  Report Type: 
  Country: None (occurrence: None)
  Receive Date: 20100621
  Receipt Date: 20100609
  Transmission Date: 20101027
  Serious: Yes (Other)
  Sender: FDA-Public Use
  Company Number: US-PFIZER INC-2010072484

PATIENT
  Sex: Male
  Weight: 88.435 kg

DRUGS (3)
  1. CHANTIX [Suspect]
     Indication: SMOKING CESSATION THERAPY
     Dosage: 0.5 MG, 1X/DAY
     Route: 048
     Dates: start: 20090601
  2. CHANTIX [Suspect]
     Dosage: UNK
     Route: 048
     Dates: start: 20100101, end: 20100529
  3. PERCOCET [Suspect]
     Indication: WRIST FRACTURE
     Route: 048

REACTIONS (2)
  - DRUG DEPENDENCE [None]
  - DRUG SCREEN POSITIVE [None]
